FAERS Safety Report 24147994 (Version 1)
Quarter: 2024Q3

REPORT INFORMATION
  Report Type: Spontaneous
  Country: US (occurrence: US)
  Receive Date: 20240729
  Receipt Date: 20240729
  Transmission Date: 20241017
  Serious: No
  Sender: SANOFI AVENTIS
  Company Number: US-SA-SAC20240723000718

PATIENT
  Sex: Male
  Weight: 131 kg

DRUGS (6)
  1. DUPIXENT [Suspect]
     Active Substance: DUPILUMAB
     Indication: Dermatitis
     Dosage: 300 MG, QOW
     Route: 058
  2. ATENOLOL [Concomitant]
     Active Substance: ATENOLOL
     Route: 048
  3. ALBUTEROL SULFATE [Concomitant]
     Active Substance: ALBUTEROL SULFATE
  4. SIMVASTATIN [Concomitant]
     Active Substance: SIMVASTATIN
     Route: 048
  5. TRIAMCINOLONE ACETONIDE [Concomitant]
     Active Substance: TRIAMCINOLONE ACETONIDE
  6. LORATADINE [Concomitant]
     Active Substance: LORATADINE
     Route: 048

REACTIONS (6)
  - Rash macular [Not Recovered/Not Resolved]
  - Nausea [Unknown]
  - Pallor [Not Recovered/Not Resolved]
  - Injection site pain [Unknown]
  - Injection site scar [Recovered/Resolved]
  - Product use in unapproved indication [Unknown]
